FAERS Safety Report 21168766 (Version 1)
Quarter: 2022Q3

REPORT INFORMATION
  Report Type: Report from Study
  Country: US (occurrence: US)
  Receive Date: 20220803
  Receipt Date: 20220803
  Transmission Date: 20221026
  Serious: Yes (Death, Other)
  Sender: FDA-Public Use
  Company Number: US-Taiho Oncology Inc-EU-2022-00372

PATIENT
  Age: 56 Year
  Sex: Female
  Weight: 63.560 kg

DRUGS (1)
  1. LONSURF [Suspect]
     Active Substance: TIPIRACIL HYDROCHLORIDE\TRIFLURIDINE
     Indication: Colon cancer
     Dosage: CURRENT CYCLE UNKNOWN
     Route: 048
     Dates: start: 20220117

REACTIONS (3)
  - Death [Fatal]
  - Disease progression [Unknown]
  - Leg amputation [Unknown]

NARRATIVE: CASE EVENT DATE: 20220625
